FAERS Safety Report 5197229-4 (Version None)
Quarter: 2006Q4

REPORT INFORMATION
  Report Type: 
  Country: None (occurrence: None)
  Receive Date: 20061228
  Receipt Date: 20061213
  Transmission Date: 20070319
  Serious: Yes (Other)
  Sender: FDA-Public Use
  Company Number: GXKR2006BR08185

PATIENT
  Age: 52 Year
  Sex: Male

DRUGS (2)
  1. RIBAVIRIN [Suspect]
     Dosage: 1 G, QD
  2. PEGINTERFERON ALFA-2A(PEGINTERFERON ALFA-2A) [Suspect]
     Dosage: QW

REACTIONS (10)
  - ALANINE AMINOTRANSFERASE INCREASED [None]
  - ANAEMIA [None]
  - ANTIBODY TEST POSITIVE [None]
  - ARTHRALGIA [None]
  - GAMMA-GLUTAMYLTRANSFERASE INCREASED [None]
  - IMMUNOGLOBULINS INCREASED [None]
  - LIVER DISORDER [None]
  - PRURITUS [None]
  - THROMBOCYTOPENIA [None]
  - XEROPHTHALMIA [None]
